FAERS Safety Report 8453531-1 (Version None)
Quarter: 2012Q2

REPORT INFORMATION
  Report Type: 
  Country: None (occurrence: None)
  Receive Date: 20120620
  Receipt Date: 20120522
  Transmission Date: 20120825
  Serious: Yes (Hospitalization)
  Sender: FDA-Public Use
  Company Number: US-VERTEX PHARMACEUTICALS INC.-AE-2012-007578

PATIENT
  Sex: Female
  Weight: 95.794 kg

DRUGS (4)
  1. PEGASYS [Concomitant]
     Indication: HEPATITIS C
     Route: 058
     Dates: start: 20120216
  2. INCIVEK [Suspect]
     Indication: HEPATITIS C
     Route: 048
     Dates: start: 20120216, end: 20120511
  3. LASIX [Concomitant]
     Dates: start: 20120518
  4. RIBAVIRIN [Concomitant]
     Indication: HEPATITIS C
     Dates: start: 20120216

REACTIONS (5)
  - DYSPNOEA [None]
  - VISUAL IMPAIRMENT [None]
  - ANAEMIA [None]
  - ABNORMAL SENSATION IN EYE [None]
  - OEDEMA PERIPHERAL [None]
